FAERS Safety Report 21859526 (Version 18)
Quarter: 2024Q2

REPORT INFORMATION
  Report Type: Spontaneous
  Country: CA (occurrence: CA)
  Receive Date: 20230113
  Receipt Date: 20240522
  Transmission Date: 20240716
  Serious: Yes (Hospitalization, Other)
  Sender: FDA-Public Use
  Company Number: CA-PFIZER INC-202200450788

PATIENT
  Age: 72 Year
  Sex: Female
  Weight: 67 kg

DRUGS (23)
  1. ABRILADA [Suspect]
     Active Substance: ADALIMUMAB-AFZB
     Indication: Crohn^s disease
     Dosage: 40 MG, WEEKLY, PREFILLED SYRINGE
     Route: 042
     Dates: start: 20220623
  2. ABRILADA [Suspect]
     Active Substance: ADALIMUMAB-AFZB
     Dosage: 40 MG, WEEKLY
     Route: 042
     Dates: start: 20220712
  3. ABRILADA [Suspect]
     Active Substance: ADALIMUMAB-AFZB
     Dosage: 40 MG, WEEKLY
     Route: 042
     Dates: start: 20220802
  4. ABRILADA [Suspect]
     Active Substance: ADALIMUMAB-AFZB
     Dosage: 40 MG, WEEKLY
     Route: 042
     Dates: start: 20220823
  5. ABRILADA [Suspect]
     Active Substance: ADALIMUMAB-AFZB
     Dosage: 40 MG, WEEKLY
     Route: 042
     Dates: start: 20220927
  6. ABRILADA [Suspect]
     Active Substance: ADALIMUMAB-AFZB
     Dosage: 40 MG, WEEKLY
     Route: 042
     Dates: start: 20221005
  7. ABRILADA [Suspect]
     Active Substance: ADALIMUMAB-AFZB
     Dosage: 40 MG, WEEKLY
     Route: 042
     Dates: start: 20221022
  8. ABRILADA [Suspect]
     Active Substance: ADALIMUMAB-AFZB
     Dosage: 40 MG, WEEKLY
     Route: 042
     Dates: start: 20221027
  9. ABRILADA [Suspect]
     Active Substance: ADALIMUMAB-AFZB
     Dosage: 40 MG, WEEKLY
     Route: 042
     Dates: start: 20221024
  10. ABRILADA [Suspect]
     Active Substance: ADALIMUMAB-AFZB
     Dosage: 40 MG, WEEKLY
     Route: 042
     Dates: start: 20221103
  11. ABRILADA [Suspect]
     Active Substance: ADALIMUMAB-AFZB
     Dosage: 40 MG, WEEKLY
     Route: 042
     Dates: start: 20221116
  12. ABRILADA [Suspect]
     Active Substance: ADALIMUMAB-AFZB
     Dosage: 40 MG, WEEKLY
     Route: 042
     Dates: start: 20221230
  13. ABRILADA [Suspect]
     Active Substance: ADALIMUMAB-AFZB
     Dosage: 40 MG, WEEKLY
     Route: 042
     Dates: start: 20230105
  14. ABRILADA [Suspect]
     Active Substance: ADALIMUMAB-AFZB
     Dosage: 40 MG, WEEKLY
     Route: 042
     Dates: start: 20230117
  15. ABRILADA [Suspect]
     Active Substance: ADALIMUMAB-AFZB
     Dosage: 40 MG, WEEKLY
     Route: 042
     Dates: start: 20230124
  16. ABRILADA [Suspect]
     Active Substance: ADALIMUMAB-AFZB
     Dosage: 40 MG, WEEKLY
     Route: 042
     Dates: start: 20230131
  17. ABRILADA [Suspect]
     Active Substance: ADALIMUMAB-AFZB
     Dosage: 40 MG, WEEKLY
     Route: 042
     Dates: start: 20230207
  18. ABRILADA [Suspect]
     Active Substance: ADALIMUMAB-AFZB
     Dosage: 40 MG, WEEKLY
     Route: 042
     Dates: start: 20230214
  19. ABRILADA [Suspect]
     Active Substance: ADALIMUMAB-AFZB
     Dosage: 40 MG, WEEKLY
     Route: 042
     Dates: start: 20230221
  20. ABRILADA [Suspect]
     Active Substance: ADALIMUMAB-AFZB
     Dosage: 40 MG, WEEKLY
     Route: 042
     Dates: start: 20230228
  21. ABRILADA [Suspect]
     Active Substance: ADALIMUMAB-AFZB
     Dosage: 40 MG, WEEKLY
     Route: 042
     Dates: start: 20230310
  22. ABRILADA [Suspect]
     Active Substance: ADALIMUMAB-AFZB
     Dosage: REINDUCTION WEEK 0 160 MG, WEEK 2 80 MG, THEN 40 MG WEEKLY
     Route: 058
     Dates: start: 2023
  23. METHOTREXATE [Concomitant]
     Active Substance: METHOTREXATE
     Indication: Crohn^s disease
     Dosage: 1 DF, DOSE, FREQUENCY AND STATUS UNKNOWN
     Route: 065

REACTIONS (20)
  - Neoplasm [Not Recovered/Not Resolved]
  - Rectal haemorrhage [Not Recovered/Not Resolved]
  - Tumour haemorrhage [Not Recovered/Not Resolved]
  - Haematochezia [Unknown]
  - Osteoarthritis [Unknown]
  - Drug ineffective [Unknown]
  - Condition aggravated [Recovering/Resolving]
  - Arthralgia [Not Recovered/Not Resolved]
  - Malaise [Unknown]
  - Discharge [Not Recovered/Not Resolved]
  - Crying [Unknown]
  - Confusional state [Not Recovered/Not Resolved]
  - Anal prolapse [Not Recovered/Not Resolved]
  - Proctalgia [Not Recovered/Not Resolved]
  - Pain [Unknown]
  - Fatigue [Not Recovered/Not Resolved]
  - Off label use [Unknown]
  - Off label use [Unknown]
  - Inappropriate schedule of product administration [Unknown]
  - Influenza [Unknown]

NARRATIVE: CASE EVENT DATE: 20220101
